FAERS Safety Report 7455410-5 (Version None)
Quarter: 2011Q2

REPORT INFORMATION
  Report Type: 
  Country: None (occurrence: None)
  Receive Date: 20110503
  Receipt Date: 20110426
  Transmission Date: 20111010
  Serious: Yes (Hospitalization)
  Sender: FDA-Public Use
  Company Number: US-SANOFI-AVENTIS-2011SA026255

PATIENT
  Sex: Male

DRUGS (6)
  1. LISINOPRIL [Concomitant]
  2. ATENOLOL [Suspect]
     Route: 065
     Dates: end: 20110401
  3. COUMADIN [Concomitant]
  4. ROSUVASTATIN CALCIUM [Concomitant]
  5. MELOXICAM [Concomitant]
  6. MULTAQ [Suspect]
     Route: 048
     Dates: end: 20110401

REACTIONS (1)
  - VENTRICULAR TACHYCARDIA [None]
